FAERS Safety Report 13305967 (Version 2)
Quarter: 2017Q1

REPORT INFORMATION
  Report Type: Spontaneous
  Country: US (occurrence: US)
  Receive Date: 20170308
  Receipt Date: 20170314
  Transmission Date: 20170428
  Serious: Yes (Other)
  Sender: FDA-Public Use
  Company Number: US-HORIZON-ACT-0048-2017

PATIENT
  Age: 15 Year
  Sex: Female

DRUGS (4)
  1. PLAQUENIL [Concomitant]
     Active Substance: HYDROXYCHLOROQUINE SULFATE
  2. ACTIMMUNE [Suspect]
     Active Substance: INTERFERON GAMMA-1B
     Indication: CHRONIC GRANULOMATOUS DISEASE
     Dosage: 50 ?G THREE TIMES WEEKLY
     Dates: start: 20150729
  3. BACTRIM [Concomitant]
     Active Substance: SULFAMETHOXAZOLE\TRIMETHOPRIM
  4. ITRACONAZOLE. [Concomitant]
     Active Substance: ITRACONAZOLE

REACTIONS (2)
  - Systemic lupus erythematosus [Recovered/Resolved]
  - Systemic lupus erythematosus rash [Recovered/Resolved]
